FAERS Safety Report 7037008-6 (Version None)
Quarter: 2010Q4

REPORT INFORMATION
  Report Type: 
  Country: None (occurrence: None)
  Receive Date: 20101011
  Receipt Date: 20100927
  Transmission Date: 20110411
  Serious: Yes (Other)
  Sender: FDA-Public Use
  Company Number: ZA-ELI_LILLY_AND_COMPANY-ZA201010000662

PATIENT
  Age: 38 Year
  Sex: Female

DRUGS (5)
  1. PROZAC [Suspect]
     Dosage: UNK, UNKNOWN
  2. PROZAC [Suspect]
     Dosage: 80 MG, UNKNOWN
     Route: 048
  3. MOLIPAXIN [Concomitant]
     Dosage: 50 MG, UNKNOWN
     Route: 048
  4. PURICOS [Concomitant]
     Dosage: UNK UNK, UNKNOWN
     Route: 048
  5. NEXIUM [Concomitant]
     Dosage: UNK UNK, UNKNOWN
     Route: 048

REACTIONS (5)
  - AGITATION [None]
  - CHEST PAIN [None]
  - DYSPNOEA [None]
  - INSOMNIA [None]
  - PLEURAL EFFUSION [None]
